FAERS Safety Report 11383437 (Version 1)
Quarter: 2015Q3

REPORT INFORMATION
  Report Type: Spontaneous
  Country: US (occurrence: US)
  Receive Date: 20150814
  Receipt Date: 20150814
  Transmission Date: 20151125
  Serious: Yes (Other)
  Sender: FDA-Public Use
  Company Number: US-ABBVIE-15P-163-1445842-00

PATIENT
  Age: 85 Year
  Sex: Male

DRUGS (4)
  1. VALPROIC ACID. [Suspect]
     Active Substance: VALPROIC ACID
     Route: 065
  2. LITHIUM. [Suspect]
     Active Substance: LITHIUM
     Indication: BIPOLAR I DISORDER
     Route: 065
  3. VALPROIC ACID. [Suspect]
     Active Substance: VALPROIC ACID
     Route: 065
  4. VALPROIC ACID. [Suspect]
     Active Substance: VALPROIC ACID
     Indication: PRODUCT USED FOR UNKNOWN INDICATION
     Route: 065

REACTIONS (6)
  - Drug ineffective [Unknown]
  - Gait disturbance [Recovering/Resolving]
  - Parkinson^s disease [Unknown]
  - Tremor [Recovered/Resolved]
  - Balance disorder [Recovering/Resolving]
  - Ammonia increased [Recovered/Resolved]
